FAERS Safety Report 8327064-7 (Version None)
Quarter: 2012Q2

REPORT INFORMATION
  Report Type: 
  Country: None (occurrence: None)
  Receive Date: 20120501
  Receipt Date: 20120103
  Transmission Date: 20120825
  Serious: No
  Sender: FDA-Public Use
  Company Number: US-SANOFI-AVENTIS-2012SA000336

PATIENT
  Age: 56 Year
  Sex: Male
  Weight: 83.46 kg

DRUGS (11)
  1. NIASPAN [Concomitant]
     Route: 048
  2. APIDRA [Suspect]
     Dosage: DOSE:100 UNIT(S)
     Route: 058
     Dates: start: 20100317, end: 20111221
  3. ALTACE [Concomitant]
     Route: 048
  4. MULTI-VITAMINS [Concomitant]
     Route: 048
  5. FISH OIL [Concomitant]
     Route: 048
  6. APIDRA [Suspect]
     Indication: TYPE 1 DIABETES MELLITUS
     Route: 058
     Dates: start: 20100604
  7. APIDRA [Suspect]
     Route: 058
     Dates: start: 20100604
  8. VITAMIN D [Concomitant]
     Route: 048
  9. INSULIN PUMP [Suspect]
     Indication: TYPE 1 DIABETES MELLITUS
  10. SIMVASTATIN [Concomitant]
     Route: 048
  11. ASPIRIN [Concomitant]
     Route: 048

REACTIONS (8)
  - INJECTION SITE ABSCESS [None]
  - GLYCOSYLATED HAEMOGLOBIN INCREASED [None]
  - DIABETES MELLITUS INADEQUATE CONTROL [None]
  - INJECTION SITE PAIN [None]
  - PRODUCT QUALITY ISSUE [None]
  - STAPHYLOCOCCAL INFECTION [None]
  - INJECTION SITE INFECTION [None]
  - BLOOD GLUCOSE INCREASED [None]
